FAERS Safety Report 5414846-4 (Version None)
Quarter: 2007Q3

REPORT INFORMATION
  Report Type: 
  Country: None (occurrence: None)
  Receive Date: 20070815
  Receipt Date: 20070808
  Transmission Date: 20080115
  Serious: Yes (Hospitalization)
  Sender: FDA-Public Use
  Company Number: PHBS2007JP13350

PATIENT
  Age: 13 Year
  Sex: Male

DRUGS (6)
  1. TEGRETOL [Suspect]
     Route: 048
  2. PHENYTOIN [Concomitant]
     Route: 065
  3. PHENOBARBITAL TAB [Concomitant]
     Route: 065
  4. CLONAZEPAM [Concomitant]
     Route: 065
  5. VALPROATE SODIUM [Concomitant]
  6. CLOBAZAM [Concomitant]
     Route: 065

REACTIONS (1)
  - EPILEPSY [None]
